FAERS Safety Report 11483152 (Version 1)
Quarter: 2015Q3

REPORT INFORMATION
  Report Type: Spontaneous
  Country: US (occurrence: US)
  Receive Date: 20150903
  Receipt Date: 20150903
  Transmission Date: 20151125
  Serious: No
  Sender: FDA-Public Use
  Company Number: US-ELI_LILLY_AND_COMPANY-US201205009408

PATIENT
  Age: 70 Year
  Sex: Male

DRUGS (1)
  1. CYMBALTA [Suspect]
     Active Substance: DULOXETINE HYDROCHLORIDE
     Indication: PHANTOM PAIN
     Dosage: 60 MG, QD
     Dates: start: 201202

REACTIONS (6)
  - Oropharyngeal pain [Unknown]
  - Eye contusion [Unknown]
  - Fall [Recovered/Resolved]
  - Contusion [Unknown]
  - Choking [Unknown]
  - Off label use [Not Recovered/Not Resolved]
